FAERS Safety Report 12607522 (Version 1)
Quarter: 2016Q3

REPORT INFORMATION
  Report Type: Spontaneous
  Country: CA (occurrence: CA)
  Receive Date: 20160729
  Receipt Date: 20160729
  Transmission Date: 20161109
  Serious: Yes (Other)
  Sender: FDA-Public Use
  Company Number: CA-MYLANLABS-2014M1008085

PATIENT

DRUGS (1)
  1. EPIPEN [Suspect]
     Active Substance: EPINEPHRINE
     Dosage: UNK UNK, ONCE
     Dates: start: 201409, end: 201409

REACTIONS (2)
  - Accidental exposure to product [Recovered/Resolved]
  - Injection site ischaemia [Not Recovered/Not Resolved]

NARRATIVE: CASE EVENT DATE: 201409
